FAERS Safety Report 12125673 (Version 1)
Quarter: 2016Q1

REPORT INFORMATION
  Report Type: Spontaneous
  Country: US (occurrence: None)
  Receive Date: 20160226
  Receipt Date: 20160226
  Transmission Date: 20160526
  Serious: No
  Sender: FDA-Public Use
  Company Number: None

PATIENT
  Age: 60 Year
  Sex: Male

DRUGS (9)
  1. GILENYA [Suspect]
     Active Substance: FINGOLIMOD HYDROCHLORIDE
     Indication: MULTIPLE SCLEROSIS
     Route: 048
     Dates: start: 201207
  2. GLIPIZIDE. [Concomitant]
     Active Substance: GLIPIZIDE
  3. HYDROCODONE BITARTRATE AND ACETAMINOPHEN [Concomitant]
     Active Substance: ACETAMINOPHEN\HYDROCODONE BITARTRATE
  4. CIPRO [Suspect]
     Active Substance: CIPROFLOXACIN HYDROCHLORIDE
  5. CLONAZEPAM. [Concomitant]
     Active Substance: CLONAZEPAM
  6. VITAMIN D [Concomitant]
     Active Substance: CHOLECALCIFEROL
  7. XARELTO [Concomitant]
     Active Substance: RIVAROXABAN
  8. GABAPENTIN. [Concomitant]
     Active Substance: GABAPENTIN
  9. LISINOPRIL. [Concomitant]
     Active Substance: LISINOPRIL

REACTIONS (7)
  - Gait disturbance [None]
  - Dizziness [None]
  - Lethargy [None]
  - Heart rate irregular [None]
  - Drug interaction [None]
  - Electrocardiogram QT prolonged [None]
  - Balance disorder [None]

NARRATIVE: CASE EVENT DATE: 20160223
